FAERS Safety Report 5140073-4 (Version None)
Quarter: 2006Q4

REPORT INFORMATION
  Report Type: 
  Country: None (occurrence: None)
  Receive Date: 20061031
  Receipt Date: 20061011
  Transmission Date: 20070319
  Serious: Yes (Hospitalization)
  Sender: FDA-Public Use
  Company Number: PHBS2006JP15967

PATIENT
  Age: 77 Year
  Sex: Female

DRUGS (2)
  1. DICLOFENAC SODIUM [Suspect]
     Indication: POSTOPERATIVE CARE
     Dosage: UNK, UNK
     Route: 054
  2. CEFAZOLIN SODIUM [Suspect]
     Dosage: 1 G/DAY

REACTIONS (3)
  - INFLAMMATION [None]
  - MELAENA [None]
  - RECTAL ULCER [None]
